FAERS Safety Report 23030935 (Version 1)
Quarter: 2023Q4

REPORT INFORMATION
  Report Type: Spontaneous
  Country: NL (occurrence: NL)
  Receive Date: 20231005
  Receipt Date: 20231005
  Transmission Date: 20240110
  Serious: Yes (Other)
  Sender: FDA-Public Use
  Company Number: NL-LRB-00909465

PATIENT
  Age: 60 Year
  Sex: Female
  Weight: 99 kg

DRUGS (1)
  1. ALENDRONIC ACID [Suspect]
     Active Substance: ALENDRONIC ACID
     Indication: Osteoporosis
     Dosage: 70 MILLIGRAM, EVERY WEEK (1 X PER WEEK 1 TABLET)
     Route: 065
     Dates: start: 20230806, end: 20230915

REACTIONS (1)
  - Atrial fibrillation [Recovering/Resolving]
